FAERS Safety Report 9520845 (Version 3)
Quarter: 2013Q3

REPORT INFORMATION
  Report Type: Spontaneous
  Country: IN (occurrence: None)
  Receive Date: 20130911
  Receipt Date: 20130919
  Transmission Date: 20140515
  Serious: Yes (Death)
  Sender: FDA-Public Use
  Company Number: FK201304014

PATIENT
  Age: 50 Year
  Sex: Male

DRUGS (5)
  1. BLEOMYCIN [Suspect]
     Indication: HODGKIN^S DISEASE
  2. DOXORUBICIN (DOXORUBICIN) (DOXORUBICIN) [Concomitant]
  3. VINBLASTINE (VINBLASTINE) [Concomitant]
  4. DACARBAZINE (DACARBAZINE) [Concomitant]
  5. GRANULOCYTE COLONY STIMULATING FACTOR (GRANULOCYTE COLONY STIMULATING FACTOR) [Concomitant]

REACTIONS (5)
  - Pulmonary toxicity [None]
  - Pulmonary fibrosis [None]
  - Arrhythmia [None]
  - Pyrexia [None]
  - Malaise [None]
